FAERS Safety Report 19491288 (Version 1)
Quarter: 2021Q3

REPORT INFORMATION
  Report Type: Spontaneous
  Country: CA (occurrence: CA)
  Receive Date: 20210705
  Receipt Date: 20210705
  Transmission Date: 20211014
  Serious: Yes (Other)
  Sender: FDA-Public Use
  Company Number: CA-ROCHE-2860689

PATIENT
  Age: 52 Year
  Sex: Male

DRUGS (6)
  1. HYDROXYCHLOROQUINE [Concomitant]
     Active Substance: HYDROXYCHLOROQUINE
  2. MYFORTIC [Suspect]
     Active Substance: MYCOPHENOLATE SODIUM
     Route: 065
  3. CELLCEPT [Suspect]
     Active Substance: MYCOPHENOLATE MOFETIL\MYCOPHENOLATE MOFETIL HYDROCHLORIDE
     Indication: PRODUCT USED FOR UNKNOWN INDICATION
     Route: 065
     Dates: start: 201601
  4. PREDNISONE. [Suspect]
     Active Substance: PREDNISONE
     Indication: PRODUCT USED FOR UNKNOWN INDICATION
     Route: 065
  5. MYFORTIC [Suspect]
     Active Substance: MYCOPHENOLATE SODIUM
     Indication: PRODUCT USED FOR UNKNOWN INDICATION
     Route: 065
  6. PREDNISONE. [Suspect]
     Active Substance: PREDNISONE
     Route: 065

REACTIONS (18)
  - Lupus nephritis [Unknown]
  - Ill-defined disorder [Unknown]
  - Anaemia [Unknown]
  - Splinter haemorrhages [Unknown]
  - Weight decreased [Unknown]
  - Headache [Unknown]
  - Proteinuria [Unknown]
  - Mucosal ulceration [Unknown]
  - Drug intolerance [Unknown]
  - Deep vein thrombosis [Unknown]
  - Pleurisy [Unknown]
  - Haematuria [Unknown]
  - Vasculitis [Unknown]
  - Raynaud^s phenomenon [Unknown]
  - Drug dependence [Unknown]
  - Osteopenia [Unknown]
  - Arthritis [Unknown]
  - Tendon rupture [Unknown]

NARRATIVE: CASE EVENT DATE: 201604
